FAERS Safety Report 25926504 (Version 1)
Quarter: 2025Q4

REPORT INFORMATION
  Report Type: Spontaneous
  Country: US (occurrence: None)
  Receive Date: 20251014
  Receipt Date: 20251014
  Transmission Date: 20260118
  Serious: Yes (Other)
  Sender: FDA-CTU
  Company Number: None

PATIENT
  Age: 70 Year
  Sex: Female
  Weight: 68.04 kg

DRUGS (8)
  1. ALENDRONATE SODIUM [Suspect]
     Active Substance: ALENDRONATE SODIUM
     Indication: Bone density abnormal
     Dosage: FREQUENCY : WEEKLY;?
     Route: 048
     Dates: start: 20250810, end: 20250825
  2. multiple Vitamins + minerals [Concomitant]
  3. COENZYME Q10 [Concomitant]
     Active Substance: DIETARY SUPPLEMENT\UBIDECARENONE
  4. Luetin [Concomitant]
  5. VITAMIN D3 [Concomitant]
     Active Substance: CHOLECALCIFEROL
  6. ALFALFA [Concomitant]
     Active Substance: ALFALFA
  7. PAPAYA [Concomitant]
     Active Substance: PAPAYA
  8. Healthy food - organics when possible [Concomitant]

REACTIONS (9)
  - Influenza like illness [None]
  - Pain in extremity [None]
  - Musculoskeletal stiffness [None]
  - Musculoskeletal disorder [None]
  - Joint stiffness [None]
  - Pain in extremity [None]
  - Paralysis [None]
  - Impaired work ability [None]
  - Product communication issue [None]

NARRATIVE: CASE EVENT DATE: 20250824
